FAERS Safety Report 10978167 (Version 3)
Quarter: 2015Q2

REPORT INFORMATION
  Report Type: Spontaneous
  Country: DE (occurrence: DE)
  Receive Date: 20150402
  Receipt Date: 20150629
  Transmission Date: 20150821
  Serious: Yes (Other)
  Sender: FDA-Public Use
  Company Number: PHHY2015DE038048

PATIENT
  Sex: Female

DRUGS (1)
  1. AFINITOR [Suspect]
     Active Substance: EVEROLIMUS
     Indication: PRODUCT USED FOR UNKNOWN INDICATION
     Dosage: 10 MG, QD
     Route: 065
     Dates: start: 201409, end: 20150511

REACTIONS (5)
  - Cough [Recovering/Resolving]
  - Pneumonitis [Recovering/Resolving]
  - Metastases to liver [Unknown]
  - Lung disorder [Recovering/Resolving]
  - Productive cough [Recovering/Resolving]
